FAERS Safety Report 8564378-X (Version None)
Quarter: 2012Q3

REPORT INFORMATION
  Report Type: 
  Country: None (occurrence: None)
  Receive Date: 20120803
  Receipt Date: 20120727
  Transmission Date: 20120928
  Serious: Yes (Other)
  Sender: FDA-Public Use
  Company Number: US-ASTELLAS-2011US003980

PATIENT
  Sex: Female

DRUGS (4)
  1. TACROLIMUS [Suspect]
     Indication: DERMATITIS ATOPIC
     Dosage: 0.1 %, WEEKLY
     Route: 061
     Dates: start: 20030611
  2. METHOTREXATE [Suspect]
     Indication: PRODUCT USED FOR UNKNOWN INDICATION
     Dosage: UNK
     Route: 065
  3. ENBREL [Suspect]
     Indication: PRODUCT USED FOR UNKNOWN INDICATION
     Dosage: UNK
     Route: 065
  4. NAPROXEN [Suspect]
     Indication: JUVENILE ARTHRITIS
     Dosage: UNK
     Route: 065

REACTIONS (2)
  - OFF LABEL USE [None]
  - OSTEOPOROSIS [None]
